FAERS Safety Report 5932970-4 (Version None)
Quarter: 2008Q4

REPORT INFORMATION
  Report Type: 
  Country: None (occurrence: None)
  Receive Date: 20081023
  Receipt Date: 20060822
  Transmission Date: 20090506
  Serious: Yes (Life-Threatening, Other)
  Sender: FDA-Public Use
  Company Number: 2006AL002572

PATIENT
  Sex: Female

DRUGS (4)
  1. ACETAMINOPHEN AND CODEINE PHOSPHATE [Suspect]
     Dosage: QID; PO
     Route: 048
     Dates: start: 20060706, end: 20060710
  2. DOMPERIDONE [Concomitant]
  3. METOCLOPRAMIDE [Concomitant]
  4. THIAMINE HCL [Concomitant]

REACTIONS (1)
  - ACUTE HEPATIC FAILURE [None]
